FAERS Safety Report 12091131 (Version 8)
Quarter: 2016Q3

REPORT INFORMATION
  Report Type: Spontaneous
  Country: US (occurrence: US)
  Receive Date: 20160218
  Receipt Date: 20160722
  Transmission Date: 20161109
  Serious: Yes (Hospitalization, Other)
  Sender: FDA-Public Use
  Company Number: US-GLAXOSMITHKLINE-US2016023247

PATIENT
  Age: 78 Year
  Sex: Male

DRUGS (18)
  1. HYDROCHLOROTHIAZIDE. [Concomitant]
     Active Substance: HYDROCHLOROTHIAZIDE
  2. METOPROLOL TARTRATE. [Concomitant]
     Active Substance: METOPROLOL TARTRATE
  3. NIFEDIPINE. [Concomitant]
     Active Substance: NIFEDIPINE
  4. SPIRIVA [Concomitant]
     Active Substance: TIOTROPIUM BROMIDE MONOHYDRATE
  5. SIMVASTATIN. [Concomitant]
     Active Substance: SIMVASTATIN
  6. ASPIRIN. [Concomitant]
     Active Substance: ASPIRIN
  7. VENTOLIN [Concomitant]
     Active Substance: ALBUTEROL SULFATE
  8. XARELTO [Suspect]
     Active Substance: RIVAROXABAN
     Indication: PRODUCT USED FOR UNKNOWN INDICATION
     Dosage: UNK, U
     Route: 065
  9. ADVAIR DISKUS [Suspect]
     Active Substance: FLUTICASONE PROPIONATE\SALMETEROL XINAFOATE
     Dosage: 1 PUFF, BID
     Route: 055
     Dates: start: 2008
  10. COENZYME Q10 [Concomitant]
     Active Substance: UBIDECARENONE
  11. ADVAIR DISKUS [Suspect]
     Active Substance: FLUTICASONE PROPIONATE\SALMETEROL XINAFOATE
     Indication: CHRONIC OBSTRUCTIVE PULMONARY DISEASE
     Dosage: 1 PUFF, BID
     Route: 055
     Dates: start: 2008
  12. ADVAIR DISKUS [Suspect]
     Active Substance: FLUTICASONE PROPIONATE\SALMETEROL XINAFOATE
     Dosage: 1 PUFF, BID
     Route: 055
     Dates: start: 2008
  13. ADVAIR DISKUS [Suspect]
     Active Substance: FLUTICASONE PROPIONATE\SALMETEROL XINAFOATE
     Dosage: UNK
  14. GARLIC TABLET [Concomitant]
  15. ADVAIR DISKUS [Suspect]
     Active Substance: FLUTICASONE PROPIONATE\SALMETEROL XINAFOATE
     Dosage: 1 PUFF, BID
     Route: 055
     Dates: start: 2008
  16. ALBUTEROL. [Concomitant]
     Active Substance: ALBUTEROL
  17. LOSARTAN POTASSIUM. [Concomitant]
     Active Substance: LOSARTAN POTASSIUM
  18. MULTAQ [Concomitant]
     Active Substance: DRONEDARONE

REACTIONS (5)
  - Large intestinal haemorrhage [Recovered/Resolved]
  - Device issue [Unknown]
  - Overdose [Unknown]
  - Arterial occlusive disease [Recovered/Resolved]
  - Product quality issue [Unknown]

NARRATIVE: CASE EVENT DATE: 20151014
